FAERS Safety Report 10708206 (Version 1)
Quarter: 2015Q1

REPORT INFORMATION
  Report Type: Report from Study
  Country: CN (occurrence: CN)
  Receive Date: 20150113
  Receipt Date: 20150113
  Transmission Date: 20150721
  Serious: Yes (Other)
  Sender: FDA-Public Use
  Company Number: CN-BAXTER-2015BAX000748

PATIENT

DRUGS (12)
  1. ROPIVACAINE [Suspect]
     Active Substance: ROPIVACAINE
     Dosage: CONTINUOUS BASAL INFUSION
     Route: 065
  2. PROPOFOL. [Suspect]
     Active Substance: PROPOFOL
     Indication: GENERAL ANAESTHESIA
     Dosage: 1-2 MG/KG
     Route: 065
  3. REMIFENTANIL [Suspect]
     Active Substance: REMIFENTANIL
     Indication: GENERAL ANAESTHESIA
     Dosage: 0.1 UG.KG-1 MIN-1 AND ADJUSTED ACCORDING TO HEMODYNAMIC RESPONSES
     Route: 065
  4. ROPIVACAINE [Suspect]
     Active Substance: ROPIVACAINE
     Dosage: AND A LOCKOUT TIME OF 60 MINUTES
     Route: 040
  5. ROCURONIUM [Suspect]
     Active Substance: ROCURONIUM BROMIDE
     Indication: GENERAL ANAESTHESIA
     Route: 065
  6. ROPIVACAINE [Suspect]
     Active Substance: ROPIVACAINE
     Indication: GENERAL ANAESTHESIA
     Route: 065
  7. QIFUMEI [Suspect]
     Active Substance: SEVOFLURANE
     Indication: GENERAL ANAESTHESIA
     Dosage: 1-2% END TIDAL CONCENTRATION
     Route: 055
  8. ROPIVACAINE [Suspect]
     Active Substance: ROPIVACAINE
     Dosage: STARTED IN THE POSTOPERATIVE ANESTHESIA CARE UNIT (PACU)
     Route: 065
  9. 5% DEXTROSE [Suspect]
     Active Substance: DEXTROSE
     Indication: PRODUCT USED FOR UNKNOWN INDICATION
     Route: 065
  10. MIDAZOLAM [Suspect]
     Active Substance: MIDAZOLAM\MIDAZOLAM HYDROCHLORIDE
     Indication: GENERAL ANAESTHESIA
     Dosage: MAXINUM DOSE
     Route: 042
  11. FENTANYL. [Suspect]
     Active Substance: FENTANYL
     Indication: GENERAL ANAESTHESIA
     Route: 065
  12. LIDOCAINE. [Suspect]
     Active Substance: LIDOCAINE
     Indication: GENERAL ANAESTHESIA
     Dosage: 1-2 MG/KG
     Route: 065

REACTIONS (1)
  - Horner^s syndrome [Recovered/Resolved]
